FAERS Safety Report 17058508 (Version 5)
Quarter: 2020Q3

REPORT INFORMATION
  Report Type: Spontaneous
  Country: JP (occurrence: JP)
  Receive Date: 20191121
  Receipt Date: 20200717
  Transmission Date: 20201102
  Serious: Yes (Death, Hospitalization, Other)
  Sender: FDA-Public Use
  Company Number: JP-AMGEN-JPNSP2019191738

PATIENT
  Age: 88 Year
  Sex: Male
  Weight: 64.5 kg

DRUGS (11)
  1. FEBURIC [Concomitant]
     Active Substance: FEBUXOSTAT
     Indication: HYPERURICAEMIA
     Dosage: 20 MILLIGRAM, QD
     Dates: start: 20190902, end: 20191022
  2. OMEPRAZOLE. [Concomitant]
     Active Substance: OMEPRAZOLE
     Indication: GLOMERULONEPHRITIS MEMBRANOUS
     Dosage: 20 MILLIGRAM, BID
     Route: 042
     Dates: start: 20191023, end: 20191103
  3. REPATHA [Suspect]
     Active Substance: EVOLOCUMAB
     Indication: HYPERCHOLESTEROLAEMIA
  4. PREDONINE [PREDNISOLONE SODIUM SUCCINATE] [Concomitant]
     Active Substance: PREDNISOLONE SODIUM SUCCINATE
     Indication: GLOMERULONEPHRITIS MEMBRANOUS
     Dosage: 25 MILLIGRAM, QD, WATER?SOLUBLE PREDONINE DRIP INFUSION (PREDNISOLONE SODIUM SUCCINATE FOR INJECTION
     Dates: start: 20191022, end: 20191103
  5. RABEPRAZOLE SODIUM. [Concomitant]
     Active Substance: RABEPRAZOLE SODIUM
     Indication: GLOMERULONEPHRITIS MEMBRANOUS
     Dosage: 10 MILLIGRAM, QD
     Dates: start: 20190902, end: 20191021
  6. LIPITOR [Concomitant]
     Active Substance: ATORVASTATIN CALCIUM
     Indication: DYSLIPIDAEMIA
     Dosage: 10 MILLIGRAM, QD
     Route: 065
     Dates: start: 20190902, end: 20191021
  7. PREDONINE [Concomitant]
     Active Substance: PREDNISOLONE
     Indication: GLOMERULONEPHRITIS MEMBRANOUS
     Dosage: 15 MILLIGRAM, BID
     Dates: start: 20190902, end: 20191021
  8. CLOPIDOGREL [Concomitant]
     Active Substance: CLOPIDOGREL BISULFATE
     Indication: LACUNAR INFARCTION
     Dosage: 75 MILLIGRAM, QD
     Dates: start: 20190902, end: 20191021
  9. REPATHA [Suspect]
     Active Substance: EVOLOCUMAB
     Indication: DYSLIPIDAEMIA
     Dosage: 140 MILLIGRAM
     Route: 058
     Dates: start: 20191023, end: 20191023
  10. AZILVA [Concomitant]
     Active Substance: AZILSARTAN KAMEDOXOMIL
     Indication: HYPERTENSION
     Dosage: 20 MILLIGRAM, QD
     Dates: start: 20190902, end: 20191022
  11. FUROSEMIDE. [Concomitant]
     Active Substance: FUROSEMIDE
     Indication: GLOMERULONEPHRITIS MEMBRANOUS
     Dosage: 40 MILLIGRAM, QD
     Dates: start: 20190902, end: 20191021

REACTIONS (7)
  - Hypoxia [Fatal]
  - Erythema [Unknown]
  - Cardio-respiratory arrest [Unknown]
  - Infection [Unknown]
  - Lactic acidosis [Unknown]
  - Anaemia [Unknown]
  - Hypoglycaemia [Unknown]

NARRATIVE: CASE EVENT DATE: 20191031
